FAERS Safety Report 19735829 (Version 1)
Quarter: 2021Q3

REPORT INFORMATION
  Report Type: Spontaneous
  Country: US (occurrence: US)
  Receive Date: 20210823
  Receipt Date: 20210823
  Transmission Date: 20211014
  Serious: Yes (Hospitalization, Other)
  Sender: FDA-Public Use
  Company Number: US-GLAXOSMITHKLINE-US2021GSK172154

PATIENT
  Age: 36 Year
  Sex: Female

DRUGS (2)
  1. IBUPROFEN. [Suspect]
     Active Substance: IBUPROFEN
     Indication: HEADACHE
     Dosage: UNK
  2. SUMATRIPTAN (SUMATRIPTAN SUCCINATE) [Suspect]
     Active Substance: SUMATRIPTAN SUCCINATE
     Indication: HEADACHE
     Dosage: UNK

REACTIONS (9)
  - Petechiae [Recovering/Resolving]
  - Drug ineffective [Unknown]
  - Gingival bleeding [Recovering/Resolving]
  - Thrombocytopenia [Recovering/Resolving]
  - Increased tendency to bruise [Recovering/Resolving]
  - Vaginal ring [Recovering/Resolving]
  - Ecchymosis [Recovered/Resolved]
  - Polychromasia [Recovering/Resolving]
  - Anisocytosis [Recovering/Resolving]
